FAERS Safety Report 6493375-3 (Version None)
Quarter: 2009Q4

REPORT INFORMATION
  Report Type: 
  Country: None (occurrence: None)
  Receive Date: 20091211
  Receipt Date: 20091211
  Transmission Date: 20100525
  Serious: Yes (Disabling)
  Sender: FDA-Public Use
  Company Number: None

PATIENT
  Sex: Male
  Weight: 117.9352 kg

DRUGS (3)
  1. ADDERALL 20 [Suspect]
     Indication: ATTENTION DEFICIT/HYPERACTIVITY DISORDER
     Dosage: 20 MG 3 X DAILY ORAL PILL
     Route: 048
     Dates: start: 20030326
  2. ADDERALL 20 [Suspect]
     Indication: NARCOLEPSY
     Dosage: 20 MG 3 X DAILY ORAL PILL
     Route: 048
     Dates: start: 20030326
  3. AMPHETAMINES [Suspect]

REACTIONS (1)
  - DENTAL CARIES [None]
